FAERS Safety Report 19506453 (Version 1)
Quarter: 2021Q3

REPORT INFORMATION
  Report Type: Spontaneous
  Country: US (occurrence: US)
  Receive Date: 20210708
  Receipt Date: 20210708
  Transmission Date: 20211014
  Serious: Yes (Hospitalization, Other)
  Sender: FDA-Public Use
  Company Number: US-MACLEODS PHARMACEUTICALS US LTD-MAC2021031792

PATIENT

DRUGS (13)
  1. FOSCARNET [Concomitant]
     Active Substance: FOSCARNET
     Indication: RETINITIS
  2. FOSCARNET [Concomitant]
     Active Substance: FOSCARNET
     Indication: VITRITIS
  3. VALACICLOVIR [Concomitant]
     Active Substance: VALACYCLOVIR HYDROCHLORIDE
     Indication: PAPILLOEDEMA
  4. ACYCLOVIR. [Suspect]
     Active Substance: ACYCLOVIR
     Indication: VARICELLA ZOSTER VIRUS INFECTION
     Dosage: 15 MILLIGRAM/KILOGRAM, TID
     Route: 042
  5. ACYCLOVIR. [Suspect]
     Active Substance: ACYCLOVIR
     Indication: RETINITIS
  6. VALACICLOVIR [Concomitant]
     Active Substance: VALACYCLOVIR HYDROCHLORIDE
     Indication: VITRITIS
     Dosage: 2 GRAM, QID
     Route: 048
  7. ATROPINE. [Concomitant]
     Active Substance: ATROPINE
     Indication: RETINITIS
  8. ATROPINE. [Concomitant]
     Active Substance: ATROPINE
     Indication: OPTIC NEURITIS
  9. VALACICLOVIR [Concomitant]
     Active Substance: VALACYCLOVIR HYDROCHLORIDE
     Indication: OPTIC NEURITIS
  10. FOSCARNET [Concomitant]
     Active Substance: FOSCARNET
     Indication: OPTIC NEURITIS
  11. ATROPINE. [Concomitant]
     Active Substance: ATROPINE
     Indication: PAPILLOEDEMA
     Dosage: UNK
     Route: 047
  12. VALACICLOVIR [Concomitant]
     Active Substance: VALACYCLOVIR HYDROCHLORIDE
     Indication: RETINITIS
     Dosage: 2 GRAM, TID
     Route: 048
  13. FOSCARNET [Concomitant]
     Active Substance: FOSCARNET
     Indication: PAPILLOEDEMA
     Dosage: 2.4 MG,TOTAL,2.4MG IN 0.1 ML

REACTIONS (1)
  - Acute kidney injury [Unknown]
